FAERS Safety Report 4792098-6 (Version None)
Quarter: 2005Q4

REPORT INFORMATION
  Report Type: 
  Country: None (occurrence: None)
  Receive Date: 20051007
  Receipt Date: 20050629
  Transmission Date: 20060501
  Serious: Yes (Hospitalization, Other)
  Sender: FDA-Public Use
  Company Number: DE-MERCK-0506DEU00242

PATIENT
  Age: 6 Year
  Sex: Male
  Weight: 19 kg

DRUGS (6)
  1. SINGULAIR [Suspect]
     Indication: BRONCHOSPASM
     Route: 048
     Dates: start: 20050616, end: 20050628
  2. SINGULAIR [Suspect]
     Indication: ASTHMA
     Route: 048
     Dates: start: 20050616, end: 20050628
  3. AMBROXOL HYDROCHLORIDE [Concomitant]
     Route: 065
  4. HOMEOPATHIC MEDICATIONS (UNSPECIFIED) [Concomitant]
     Indication: HYPERPYREXIA
     Route: 048
     Dates: start: 20050616, end: 20050618
  5. CROMOLYN SODIUM [Concomitant]
     Route: 065
  6. CROMOLYN SODIUM [Concomitant]
     Route: 047

REACTIONS (6)
  - CONVULSION [None]
  - EPILEPSY [None]
  - EYE DISORDER [None]
  - EYELID FUNCTION DISORDER [None]
  - RED BLOOD CELL SEDIMENTATION RATE INCREASED [None]
  - TIC [None]
